FAERS Safety Report 5915375-1 (Version None)
Quarter: 2008Q4

REPORT INFORMATION
  Report Type: 
  Country: None (occurrence: None)
  Receive Date: 20081010
  Receipt Date: 20081006
  Transmission Date: 20090506
  Serious: Yes (Death)
  Sender: FDA-Public Use
  Company Number: AU-NOVOPROD-280128

PATIENT
  Age: 67 Year
  Sex: Male
  Weight: 75 kg

DRUGS (2)
  1. NOVOSEVEN [Suspect]
     Indication: SURGERY
     Dosage: 1.2 MG, UNK
     Route: 042
     Dates: start: 20060623
  2. NOVOSEVEN [Suspect]
     Dosage: 3.6 UNK, UNK
     Route: 042
     Dates: start: 20060623

REACTIONS (2)
  - CARDIAC ARREST [None]
  - CEREBELLAR INFARCTION [None]
